FAERS Safety Report 8808042 (Version 1)
Quarter: 2012Q4

REPORT INFORMATION
  Report Type: 
  Country: US (occurrence: US)
  Receive Date: 20120925
  Receipt Date: 20120925
  Transmission Date: 20130627
  Serious: Yes (Hospitalization)
  Sender: FDA-Public Use
  Company Number: US-MYLANLABS-2012S1019199

PATIENT
  Age: 42 Year
  Sex: Male

DRUGS (6)
  1. PREDNISONE [Suspect]
     Indication: COLITIS ULCERATIVE
     Dosage: 35mg daily
     Route: 065
  2. AZATHIOPRINE [Suspect]
     Indication: COLITIS ULCERATIVE
     Dosage: 150mg daily
     Route: 065
  3. AMPHOTERICIN B [Suspect]
     Indication: MENINGITIS CRYPTOCOCCAL
     Dosage: 0.7 mg/kg daily
     Route: 042
  4. MESALAZINE [Concomitant]
     Route: 065
  5. METOPROLOL [Concomitant]
     Route: 065
  6. METFORMIN [Concomitant]
     Route: 065

REACTIONS (2)
  - Meningitis cryptococcal [Recovering/Resolving]
  - Anaphylactoid reaction [Recovering/Resolving]
